FAERS Safety Report 4809160-1 (Version None)
Quarter: 2005Q4

REPORT INFORMATION
  Report Type: 
  Country: None (occurrence: None)
  Receive Date: 20051021
  Receipt Date: 20021107
  Transmission Date: 20060501
  Serious: Yes (Hospitalization)
  Sender: FDA-Public Use
  Company Number: EWC021133006

PATIENT
  Sex: Female

DRUGS (6)
  1. OLANZAPINE [Suspect]
     Dosage: 10 MG/DAY
     Dates: start: 20020701, end: 20021011
  2. FUROSEMIDE [Concomitant]
  3. ACETAMINOPHEN [Concomitant]
  4. ZOPICLONE [Concomitant]
  5. WARFARIN SODIUM [Concomitant]
  6. TRIMETHOPRIM [Concomitant]

REACTIONS (2)
  - LEUKOPENIA [None]
  - NEUTROPENIA [None]
